FAERS Safety Report 9045024 (Version 1)
Quarter: 2013Q1

REPORT INFORMATION
  Report Type: Report from Study
  Country: US (occurrence: US)
  Receive Date: 20130130
  Receipt Date: 20130130
  Transmission Date: 20140127
  Serious: No
  Sender: FDA-Public Use
  Company Number: US-ABBOTT-12P-163-0966551-00

PATIENT
  Age: 55 Year
  Sex: Male

DRUGS (5)
  1. HUMIRA 40 MG/0.8 ML PEN [Suspect]
     Indication: CROHN^S DISEASE
     Route: 058
     Dates: start: 20120626
  2. PENTASA [Concomitant]
     Indication: CROHN^S DISEASE
     Dosage: 8 TABLETS DAILY
  3. LISINOPRIL [Concomitant]
     Indication: HYPERTENSION
     Dosage: 20MG DAILY
  4. PANTOPRAZOLE [Concomitant]
     Indication: GASTROOESOPHAGEAL REFLUX DISEASE
     Dosage: 40MG DAILY
  5. BUDESONIDE [Concomitant]
     Indication: INTESTINAL OBSTRUCTION
     Dosage: 3MG DAILY

REACTIONS (3)
  - Toothache [Recovered/Resolved]
  - Pain in jaw [Not Recovered/Not Resolved]
  - Sinus headache [Recovered/Resolved]
